FAERS Safety Report 10193114 (Version 1)
Quarter: 2014Q2

REPORT INFORMATION
  Report Type: Spontaneous
  Country: US (occurrence: US)
  Receive Date: 20140524
  Receipt Date: 20140524
  Transmission Date: 20141212
  Serious: No
  Sender: FDA-Public Use
  Company Number: US-SA-2013SA108096

PATIENT
  Age: 78 Year
  Sex: Female

DRUGS (3)
  1. SOLOSTAR [Suspect]
     Indication: TYPE 2 DIABETES MELLITUS
     Dosage: TAKEN FROM- 2 WEEKS
  2. LANTUS SOLOSTAR [Suspect]
     Indication: TYPE 2 DIABETES MELLITUS
     Dosage: TAKEN FROM- 2 WEEKS DOSE:10 UNIT(S)
     Route: 051
  3. METFORMIN [Concomitant]
     Dosage: 3 TABLETS IN THE MORNING AND 2 IN THE EVENING.
     Route: 065

REACTIONS (2)
  - Tremor [Unknown]
  - Blood glucose increased [Unknown]
